FAERS Safety Report 7214294-0 (Version None)
Quarter: 2011Q1

REPORT INFORMATION
  Report Type: 
  Country: None (occurrence: None)
  Receive Date: 20110107
  Receipt Date: 20110104
  Transmission Date: 20110831
  Serious: Yes (Life-Threatening, Hospitalization)
  Sender: FDA-Public Use
  Company Number: BR-BRISTOL-MYERS SQUIBB COMPANY-15470255

PATIENT
  Age: 71 Year
  Sex: Male

DRUGS (2)
  1. PACLITAXEL [Suspect]
     Indication: NON-SMALL CELL LUNG CANCER
     Dosage: ON DAY 1 OF EACH 21 DAY CYCLE  1 IN 21 DAY
     Route: 042
     Dates: start: 20100930
  2. CARBOPLATIN [Suspect]
     Indication: NON-SMALL CELL LUNG CANCER
     Dosage: 1 DF = AUC 6 MG/ML/MINT ON DAY 1 OF EACH 21 DAY CYCLE  1 IN 21 DAY
     Route: 042
     Dates: start: 20100930

REACTIONS (6)
  - PNEUMONIA [None]
  - URINARY TRACT INFECTION [None]
  - DEHYDRATION [None]
  - NEUTROPENIA [None]
  - RESPIRATORY FAILURE [None]
  - MUCOSAL INFLAMMATION [None]
